FAERS Safety Report 9456313 (Version 4)
Quarter: 2014Q2

REPORT INFORMATION
  Report Type: Spontaneous
  Country: US (occurrence: US)
  Receive Date: 20130813
  Receipt Date: 20140605
  Transmission Date: 20141212
  Serious: Yes (Hospitalization)
  Sender: FDA-Public Use
  Company Number: US-GLAXOSMITHKLINE-A1037370A

PATIENT
  Sex: Female

DRUGS (3)
  1. FLOLAN [Suspect]
     Indication: COR PULMONALE CHRONIC
     Dosage: 50NGKM CONTINUOUS
     Route: 042
     Dates: start: 20070817
  2. COUMADIN [Concomitant]
  3. LETAIRIS [Concomitant]

REACTIONS (3)
  - Investigation [Unknown]
  - Palpitations [Unknown]
  - Gastroenteritis viral [Unknown]
